FAERS Safety Report 4792056-1 (Version None)
Quarter: 2005Q4

REPORT INFORMATION
  Report Type: 
  Country: None (occurrence: None)
  Receive Date: 20051007
  Receipt Date: 20050629
  Transmission Date: 20060501
  Serious: Yes (Hospitalization, Disabling)
  Sender: FDA-Public Use
  Company Number: US-MERCK-0506USA04322

PATIENT
  Age: 56 Year
  Sex: Female
  Weight: 81 kg

DRUGS (12)
  1. VIOXX [Suspect]
     Indication: ARTHRALGIA
     Route: 048
     Dates: start: 20000601, end: 20020801
  2. VIOXX [Suspect]
     Route: 048
     Dates: start: 20000601, end: 20020801
  3. LIPITOR [Concomitant]
     Indication: BLOOD CHOLESTEROL INCREASED
     Route: 065
  4. ZOCOR [Concomitant]
     Indication: BLOOD CHOLESTEROL INCREASED
     Route: 048
  5. TENORMIN [Concomitant]
     Indication: CARDIAC DISORDER
     Route: 065
     Dates: start: 20020701
  6. NORVASC [Concomitant]
     Indication: CHEST PAIN
     Route: 065
     Dates: start: 20020201
  7. NORVASC [Concomitant]
     Indication: CARDIAC DISORDER
     Route: 065
     Dates: start: 20020201
  8. DYAZIDE [Concomitant]
     Indication: HYPERTENSION
     Route: 065
     Dates: start: 20000601
  9. COMBIPATCH [Concomitant]
     Indication: HORMONE REPLACEMENT THERAPY
     Route: 065
  10. AMBIEN [Concomitant]
     Indication: INSOMNIA
     Route: 065
     Dates: start: 19990601
  11. DIOVAN HCT [Concomitant]
     Indication: HYPERTENSION
     Route: 065
     Dates: start: 20001030, end: 20020804
  12. TOPROL-XL [Concomitant]
     Route: 065

REACTIONS (12)
  - ANXIETY [None]
  - ARRHYTHMIA [None]
  - BLOOD PRESSURE SYSTOLIC INCREASED [None]
  - BUNDLE BRANCH BLOCK LEFT [None]
  - CHEST PAIN [None]
  - CORONARY ARTERY DISEASE [None]
  - DECREASED ACTIVITY [None]
  - DIABETES MELLITUS [None]
  - FATIGUE [None]
  - HYPERTENSION [None]
  - MYOCARDIAL INFARCTION [None]
  - PANIC ATTACK [None]
